FAERS Safety Report 14970637 (Version 1)
Quarter: 2018Q2

REPORT INFORMATION
  Report Type: Spontaneous
  Country: ES (occurrence: ES)
  Receive Date: 20180604
  Receipt Date: 20180604
  Transmission Date: 20180711
  Serious: Yes (Other)
  Sender: FDA-Public Use
  Company Number: ES-MYLANLABS-2018M1037020

PATIENT
  Age: 14 Year
  Sex: Female

DRUGS (9)
  1. ETOPOSIDE. [Suspect]
     Active Substance: ETOPOSIDE
     Indication: EWING^S SARCOMA
     Dosage: ON DAYS 1-3 (EVERY THREE WEEKS X 6 CYCLES). COMPLETED SIX CYCLES PRIOR TO SURGICAL RESECTION.
     Route: 042
     Dates: start: 200904
  2. IFOSFAMIDE. [Suspect]
     Active Substance: IFOSFAMIDE
     Indication: EWING^S SARCOMA
     Dosage: ON DAYS 1-3. COMPLETED SIX CYCLES PRIOR TO SURGICAL RESECTION.
     Route: 042
     Dates: start: 200904
  3. DOXORUBICIN [Suspect]
     Active Substance: DOXORUBICIN
     Indication: EWING^S SARCOMA
     Dosage: ON DAYS 1-3. COMPLETED SIX CYCLES PRIOR TO SURGICAL RESECTION.
     Route: 042
     Dates: start: 200904
  4. TEMOZOLOMIDE. [Suspect]
     Active Substance: TEMOZOLOMIDE
     Indication: EWING^S SARCOMA
     Dosage: ON DAYS 1-21
     Route: 048
     Dates: start: 201004
  5. IRINOTECAN [Suspect]
     Active Substance: IRINOTECAN
     Indication: EWING^S SARCOMA
     Dosage: ON DAYS 1-5 AND 8-13
     Route: 042
     Dates: start: 201004
  6. VINCRISTINE [Suspect]
     Active Substance: VINCRISTINE
     Dosage: ON DAY ONE; RECEIVED 8 CYCLES
     Route: 042
     Dates: start: 200910
  7. VINCRISTINE [Suspect]
     Active Substance: VINCRISTINE
     Indication: EWING^S SARCOMA
     Dosage: ON DAY ONE; COMPLETED SIX CYCLES PRIOR TO SURGICAL RESECTION.
     Route: 042
     Dates: start: 200904
  8. BEVACIZUMAB. [Suspect]
     Active Substance: BEVACIZUMAB
     Indication: EWING^S SARCOMA
     Dosage: ON DAY 1 (EVERY 21 DAYS X 5 CYCLES)
     Route: 042
     Dates: start: 201004
  9. CYCLOPHOSPHAMIDE. [Suspect]
     Active Substance: CYCLOPHOSPHAMIDE
     Indication: EWING^S SARCOMA
     Dosage: ON DAY 1; EVERY THREE WEEKS X 8 CYCLES.
     Route: 042
     Dates: start: 200910

REACTIONS (2)
  - Treatment failure [Recovered/Resolved]
  - Blood stem cell transplant failure [Recovered/Resolved]
